FAERS Safety Report 5703057-0 (Version None)
Quarter: 2008Q2

REPORT INFORMATION
  Report Type: 
  Country: None (occurrence: None)
  Receive Date: 20080408
  Receipt Date: 20080331
  Transmission Date: 20081010
  Serious: Yes (Life-Threatening, Hospitalization)
  Sender: FDA-Public Use
  Company Number: GXKR2008GB03140

PATIENT
  Age: 42 Year
  Sex: Female

DRUGS (10)
  1. DOXYCYCLINE [Suspect]
     Indication: STAPHYLOCOCCAL INFECTION
     Dosage: 100 MG, ORAL
     Route: 048
     Dates: start: 20080211, end: 20080304
  2. RIFAMPICIN [Suspect]
     Indication: STAPHYLOCOCCAL INFECTION
     Dosage: 300 MG, BID, ORAL
     Route: 048
     Dates: start: 20080211, end: 20080304
  3. AMITRIPTYLINE HCL [Concomitant]
  4. BACLOFEN [Concomitant]
  5. DICLOFENAC SODIUM [Concomitant]
  6. LACTULOSE [Concomitant]
  7. OMEPRAZOLE [Concomitant]
  8. OXYCODONE HCL [Concomitant]
  9. ACETAMINOPHEN [Concomitant]
  10. SENNA (SENNA, SENNA ALEXANDRINA) [Concomitant]

REACTIONS (3)
  - CHILLS [None]
  - MALAISE [None]
  - STEVENS-JOHNSON SYNDROME [None]
